FAERS Safety Report 25476976 (Version 1)
Quarter: 2025Q2

REPORT INFORMATION
  Report Type: Spontaneous
  Country: US (occurrence: US)
  Receive Date: 20250625
  Receipt Date: 20250625
  Transmission Date: 20250717
  Serious: Yes (Other)
  Sender: SANDOZ
  Company Number: US-SANDOZ-SDZ2025US042892

PATIENT
  Age: 84 Year
  Sex: Male

DRUGS (1)
  1. RECLAST [Suspect]
     Active Substance: ZOLEDRONIC ACID
     Indication: Product used for unknown indication
     Dosage: STRENGTH (5MG/100ML 1LIVI) INFUSION 2 WEEKS AGO
     Route: 065
     Dates: start: 202505

REACTIONS (9)
  - Angina pectoris [Unknown]
  - Ill-defined disorder [Unknown]
  - Headache [Unknown]
  - Chest pain [Unknown]
  - Joint swelling [Unknown]
  - Myalgia [Unknown]
  - Pyrexia [Unknown]
  - Arthralgia [Unknown]
  - Arthritis [Unknown]

NARRATIVE: CASE EVENT DATE: 20250528
